FAERS Safety Report 8956928 (Version 1)
Quarter: 2012Q4

REPORT INFORMATION
  Report Type: 
  Country: US (occurrence: US)
  Receive Date: 20121210
  Receipt Date: 20121210
  Transmission Date: 20130627
  Serious: No
  Sender: FDA-Public Use
  Company Number: US-ASTRAZENECA-2012SE86601

PATIENT
  Age: 69 Year
  Sex: Female
  Weight: 88.5 kg

DRUGS (6)
  1. ARIMIDEX [Suspect]
     Indication: BREAST CANCER
     Route: 048
     Dates: start: 201210, end: 20121029
  2. LISINOPRIL + HYDROCHLOROTHIAZIDE [Suspect]
     Indication: HYPERTENSION
     Route: 065
  3. CALCIUM [Concomitant]
     Indication: BONE LOSS
  4. VITAMIN D [Concomitant]
  5. MULTIVITAMIN [Concomitant]
  6. VITAMIN B COMPLEX [Concomitant]

REACTIONS (11)
  - Weight bearing difficulty [Unknown]
  - Paraesthesia [Unknown]
  - Muscle disorder [Unknown]
  - Pain in extremity [Unknown]
  - Pain in extremity [Unknown]
  - Immobile [Unknown]
  - Insomnia [Unknown]
  - Arthralgia [Unknown]
  - Hot flush [Unknown]
  - Cardiovascular disorder [Unknown]
  - Bone density abnormal [Unknown]
